FAERS Safety Report 11501651 (Version 1)
Quarter: 2015Q3

REPORT INFORMATION
  Report Type: Report from Study
  Country: US (occurrence: US)
  Receive Date: 20150914
  Receipt Date: 20150914
  Transmission Date: 20151125
  Serious: Yes (Other)
  Sender: FDA-Public Use
  Company Number: US-BAYER-2015-415540

PATIENT
  Age: 72 Year
  Sex: Female

DRUGS (1)
  1. STIVARGA [Suspect]
     Active Substance: REGORAFENIB
     Indication: COLORECTAL CANCER METASTATIC
     Dosage: 160 MG, QD
     Route: 048
     Dates: start: 20150827, end: 20150904

REACTIONS (9)
  - Urinary tract infection [None]
  - Diarrhoea [None]
  - Decreased appetite [None]
  - Fatigue [None]
  - Hypophagia [None]
  - Asthenia [None]
  - Intentional product use issue [None]
  - Dehydration [None]
  - Fluid intake reduced [None]

NARRATIVE: CASE EVENT DATE: 2015
